FAERS Safety Report 5155687-5 (Version None)
Quarter: 2006Q4

REPORT INFORMATION
  Report Type: 
  Country: None (occurrence: None)
  Receive Date: 20061121
  Receipt Date: 20061117
  Transmission Date: 20070319
  Serious: Yes (Other)
  Sender: FDA-Public Use
  Company Number: CH-MERCK-0611CHE00011

PATIENT
  Age: 34 Year
  Sex: Female

DRUGS (4)
  1. MODURETIC 5-50 [Suspect]
     Indication: RENAL IMPAIRMENT
     Route: 048
     Dates: end: 20061001
  2. MODURETIC 5-50 [Suspect]
     Route: 048
     Dates: start: 20061001, end: 20061001
  3. MODURETIC 5-50 [Suspect]
     Indication: OEDEMA
     Route: 048
     Dates: end: 20061001
  4. MODURETIC 5-50 [Suspect]
     Route: 048
     Dates: start: 20061001, end: 20061001

REACTIONS (1)
  - DRUG EXPOSURE DURING PREGNANCY [None]
